FAERS Safety Report 4752106-5 (Version None)
Quarter: 2005Q3

REPORT INFORMATION
  Report Type: 
  Country: None (occurrence: None)
  Receive Date: 20050825
  Receipt Date: 20050714
  Transmission Date: 20060218
  Serious: Yes (Life-Threatening)
  Sender: FDA-Public Use
  Company Number: 2005AP03914

PATIENT
  Age: 47 Year
  Sex: Female

DRUGS (7)
  1. MARCAINE [Suspect]
  2. XYLOCAINE [Suspect]
  3. DIPRIVAN [Suspect]
  4. VECURONIUM BROMIDE [Suspect]
  5. MORPHINE HYDROCHLORIDE [Concomitant]
  6. ATROPINE SULFATE [Concomitant]
  7. NEOSTIGMINE METHYLSULFATE [Concomitant]

REACTIONS (1)
  - HYPERTHERMIA MALIGNANT [None]
